FAERS Safety Report 14731124 (Version 1)
Quarter: 2018Q2

REPORT INFORMATION
  Report Type: Spontaneous
  Country: US (occurrence: US)
  Receive Date: 20180406
  Receipt Date: 20180406
  Transmission Date: 20180711
  Serious: No
  Sender: FDA-Public Use
  Company Number: US-TAKEDA-2018TUS008339

PATIENT
  Sex: Male

DRUGS (2)
  1. ROZEREM [Suspect]
     Active Substance: RAMELTEON
     Dosage: 8 MG, QD
     Route: 048
     Dates: start: 20180323
  2. ROZEREM [Suspect]
     Active Substance: RAMELTEON
     Indication: CIRCADIAN RHYTHM SLEEP DISORDER
     Dosage: 8 MG, QD
     Route: 048
     Dates: start: 20180222, end: 20180322

REACTIONS (5)
  - Off label use [Unknown]
  - Poor quality drug administered [Unknown]
  - Headache [Unknown]
  - Dizziness [Unknown]
  - Balance disorder [Unknown]

NARRATIVE: CASE EVENT DATE: 20180222
